FAERS Safety Report 4612305-X (Version None)
Quarter: 2005Q2

REPORT INFORMATION
  Report Type: 
  Country: None (occurrence: None)
  Receive Date: 20050308
  Receipt Date: 20050117
  Transmission Date: 20051028
  Serious: No
  Sender: FDA-Public Use
  Company Number: 2005UW01216

PATIENT
  Age: 52 Year
  Sex: Male

DRUGS (3)
  1. CRESTOR [Suspect]
     Dosage: 1 DF DAILY PO
     Route: 048
  2. TRAMADOL [Concomitant]
  3. IBUPROFEN [Concomitant]

REACTIONS (1)
  - MYALGIA [None]
